FAERS Safety Report 8304039-5 (Version None)
Quarter: 2012Q2

REPORT INFORMATION
  Report Type: 
  Country: None (occurrence: None)
  Receive Date: 20120418
  Receipt Date: 20120409
  Transmission Date: 20120825
  Serious: Yes (Hospitalization)
  Sender: FDA-Public Use
  Company Number: 1258421

PATIENT
  Age: 82 Year
  Sex: Female

DRUGS (1)
  1. PENTAZOCINE LACTATE [Suspect]
     Dosage: SUBCUTANEOUS
     Route: 058

REACTIONS (5)
  - CALCINOSIS [None]
  - DRUG ABUSE [None]
  - SKIN INDURATION [None]
  - SKIN GRAFT [None]
  - SKIN ULCER [None]
